FAERS Safety Report 23083540 (Version 4)
Quarter: 2024Q2

REPORT INFORMATION
  Report Type: Spontaneous
  Country: US (occurrence: US)
  Receive Date: 20231019
  Receipt Date: 20240401
  Transmission Date: 20240716
  Serious: No
  Sender: FDA-Public Use
  Company Number: US-002147023-NVSC2023US223767

PATIENT
  Sex: Male

DRUGS (1)
  1. KESIMPTA [Suspect]
     Active Substance: OFATUMUMAB
     Indication: Relapsing multiple sclerosis
     Dosage: UNK
     Route: 065
     Dates: start: 20230502

REACTIONS (5)
  - Feeling abnormal [Unknown]
  - Muscle tightness [Unknown]
  - Pain [Unknown]
  - Fine motor delay [Unknown]
  - General physical condition abnormal [Unknown]
